FAERS Safety Report 5620292-0 (Version None)
Quarter: 2008Q1

REPORT INFORMATION
  Report Type: 
  Country: None (occurrence: None)
  Receive Date: 20080208
  Receipt Date: 20080208
  Transmission Date: 20080703
  Serious: Yes (Other)
  Sender: FDA-Public Use
  Company Number: A0708233A

PATIENT
  Age: 41 Year
  Sex: Female

DRUGS (2)
  1. ALLI [Suspect]
     Indication: DRUG USE FOR UNKNOWN INDICATION
     Route: 048
  2. TAMOXIFEN [Concomitant]

REACTIONS (4)
  - INFLUENZA LIKE ILLNESS [None]
  - MALAISE [None]
  - PNEUMONIA [None]
  - VOMITING [None]
